FAERS Safety Report 18665574 (Version 1)
Quarter: 2020Q4

REPORT INFORMATION
  Report Type: Spontaneous
  Country: US (occurrence: US)
  Receive Date: 20201226
  Receipt Date: 20201226
  Transmission Date: 20210114
  Serious: No
  Sender: FDA-Public Use
  Company Number: US-SA-2020SA370238

PATIENT

DRUGS (1)
  1. DUPIXENT [Suspect]
     Active Substance: DUPILUMAB
     Dosage: LOADING DOSE (2 INJECTIONS)

REACTIONS (3)
  - Product administered at inappropriate site [Unknown]
  - Injection site pruritus [Unknown]
  - Injection site erythema [Unknown]
